FAERS Safety Report 23814400 (Version 1)
Quarter: 2024Q2

REPORT INFORMATION
  Report Type: Spontaneous
  Country: US (occurrence: US)
  Receive Date: 20240503
  Receipt Date: 20240503
  Transmission Date: 20240716
  Serious: Yes (Hospitalization)
  Sender: FDA-Public Use
  Company Number: US-MYLANLABS-2024M1038729

PATIENT
  Age: 90 Year
  Sex: Male

DRUGS (3)
  1. HYDROCORTISONE [Suspect]
     Active Substance: HYDROCORTISONE
     Indication: Addison^s disease
     Dosage: 20 MILLIGRAM, TID, THREE TIMES DAILY
     Route: 065
  2. HYDROCORTISONE [Suspect]
     Active Substance: HYDROCORTISONE
     Dosage: UNK; SUBSEQUENTLY TAPERED DOWN
     Route: 065
  3. FLUDROCORTISONE [Suspect]
     Active Substance: FLUDROCORTISONE
     Indication: Addison^s disease
     Dosage: 0.05 MILLIGRAM, QD
     Route: 065

REACTIONS (5)
  - Diverticulitis intestinal perforated [Recovered/Resolved]
  - Pneumoretroperitoneum [Recovered/Resolved]
  - Pneumomediastinum [Recovered/Resolved]
  - Emphysema [Recovered/Resolved]
  - Abdominal abscess [Unknown]
